FAERS Safety Report 8231321-2 (Version None)
Quarter: 2012Q1

REPORT INFORMATION
  Report Type: 
  Country: None (occurrence: None)
  Receive Date: 20120320
  Receipt Date: 20120308
  Transmission Date: 20120608
  Serious: Yes (Hospitalization)
  Sender: FDA-Public Use
  Company Number: 2011SP052568

PATIENT
  Age: 52 Year
  Sex: Male

DRUGS (1)
  1. PEG-INTRON [Suspect]
     Indication: HEPATITIS C
     Dosage: 150 MCG;SC
     Route: 058

REACTIONS (5)
  - HEADACHE [None]
  - ANXIETY [None]
  - THROMBOSIS [None]
  - PNEUMONIA [None]
  - ASTHENIA [None]
